FAERS Safety Report 8458836-6 (Version None)
Quarter: 2012Q2

REPORT INFORMATION
  Report Type: 
  Country: None (occurrence: None)
  Receive Date: 20120622
  Receipt Date: 20120618
  Transmission Date: 20120825
  Serious: Yes (Other)
  Sender: FDA-Public Use
  Company Number: US-PFIZER INC-2012146678

PATIENT

DRUGS (1)
  1. NEURONTIN [Suspect]
     Dosage: 1 DF, 3X/DAY

REACTIONS (3)
  - FIBROMYALGIA [None]
  - IMPAIRED WORK ABILITY [None]
  - CHRONIC SINUSITIS [None]
